FAERS Safety Report 16676524 (Version 1)
Quarter: 2019Q3

REPORT INFORMATION
  Report Type: Report from Study
  Country: RU (occurrence: RU)
  Receive Date: 20190807
  Receipt Date: 20190807
  Transmission Date: 20191004
  Serious: Yes (Other)
  Sender: FDA-Public Use
  Company Number: RU-ROCHE-2369464

PATIENT

DRUGS (5)
  1. AVELUMAB [Suspect]
     Active Substance: AVELUMAB
     Indication: NEOPLASM MALIGNANT
     Route: 065
  2. NIVOLUMAB [Suspect]
     Active Substance: NIVOLUMAB
     Indication: NEOPLASM MALIGNANT
     Route: 065
  3. ATEZOLIZUMAB. [Suspect]
     Active Substance: ATEZOLIZUMAB
     Indication: NEOPLASM MALIGNANT
     Route: 041
  4. IPILIMUMAB [Suspect]
     Active Substance: IPILIMUMAB
     Indication: NEOPLASM MALIGNANT
     Route: 065
  5. PEMBROLIZUMAB. [Suspect]
     Active Substance: PEMBROLIZUMAB
     Indication: NEOPLASM MALIGNANT
     Route: 065

REACTIONS (10)
  - Ischaemia [Unknown]
  - Thyroiditis [Unknown]
  - Atrioventricular block [Unknown]
  - Myocarditis [Unknown]
  - Left ventricular dysfunction [Unknown]
  - Myositis [Unknown]
  - Pericarditis [Unknown]
  - Atrial fibrillation [Unknown]
  - Palpitations [Unknown]
  - Atrial tachycardia [Unknown]
